FAERS Safety Report 21022721 (Version 1)
Quarter: 2022Q2

REPORT INFORMATION
  Report Type: Spontaneous
  Country: ES (occurrence: ES)
  Receive Date: 20220629
  Receipt Date: 20220629
  Transmission Date: 20220721
  Serious: Yes (Other)
  Sender: FDA-Public Use
  Company Number: ES-ANIPHARMA-2022-ES-000089

PATIENT
  Age: 77 Year
  Sex: Female

DRUGS (1)
  1. ARIMIDEX [Suspect]
     Active Substance: ANASTROZOLE
     Indication: Breast cancer
     Dosage: 1 MG DAILY
     Route: 048
     Dates: start: 20210524, end: 20220424

REACTIONS (3)
  - Dupuytren^s contracture [Not Recovered/Not Resolved]
  - Trigger finger [Not Recovered/Not Resolved]
  - Carpal tunnel syndrome [Not Recovered/Not Resolved]

NARRATIVE: CASE EVENT DATE: 20211220
